FAERS Safety Report 8056856-7 (Version None)
Quarter: 2012Q1

REPORT INFORMATION
  Report Type: 
  Country: None (occurrence: None)
  Receive Date: 20120119
  Receipt Date: 20120111
  Transmission Date: 20120608
  Serious: Yes (Death)
  Sender: FDA-Public Use
  Company Number: US-CELGENEUS-163-21880-11090729

PATIENT
  Sex: Female

DRUGS (1)
  1. REVLIMID [Suspect]
     Indication: MYELODYSPLASTIC SYNDROME
     Dosage: 10 MILLIGRAM
     Route: 048
     Dates: start: 20110801, end: 20110101

REACTIONS (7)
  - MYELODYSPLASTIC SYNDROME [None]
  - CONTUSION [None]
  - VOMITING [None]
  - FEELING COLD [None]
  - DIARRHOEA [None]
  - BACK PAIN [None]
  - NAUSEA [None]
